FAERS Safety Report 8635077 (Version 5)
Quarter: 2012Q4

REPORT INFORMATION
  Report Type: 
  Country: US (occurrence: US)
  Receive Date: 20120626
  Receipt Date: 20121105
  Transmission Date: 20130627
  Serious: Yes (Hospitalization, Other)
  Sender: FDA-Public Use
  Company Number: US-UCBSA-059919

PATIENT
  Age: 30 Year
  Sex: Male
  Weight: 86 kg

DRUGS (1)
  1. CIMZIA [Suspect]
     Indication: CROHN^S DISEASE
     Dates: start: 20111101

REACTIONS (3)
  - Small intestinal obstruction [Recovered/Resolved]
  - Rectal haemorrhage [Recovered/Resolved]
  - Wound complication [Recovering/Resolving]
